FAERS Safety Report 24568756 (Version 1)
Quarter: 2024Q4

REPORT INFORMATION
  Report Type: Spontaneous
  Country: US (occurrence: US)
  Receive Date: 20241031
  Receipt Date: 20241031
  Transmission Date: 20250115
  Serious: No
  Sender: INSUD PHARMA
  Company Number: US-INSUD PHARMA-2410US08124

PATIENT

DRUGS (1)
  1. ENILLORING [Suspect]
     Active Substance: ETHINYL ESTRADIOL\ETONOGESTREL
     Indication: Exposure via direct contact
     Dosage: NOT APPLICABLE
     Route: 050
     Dates: start: 202408, end: 202409

REACTIONS (1)
  - Dyspareunia [Recovered/Resolved]

NARRATIVE: CASE EVENT DATE: 20240801
